FAERS Safety Report 6233255-1 (Version None)
Quarter: 2009Q2

REPORT INFORMATION
  Report Type: 
  Country: None (occurrence: None)
  Receive Date: 20090617
  Receipt Date: 20090610
  Transmission Date: 20091009
  Serious: Yes (Hospitalization)
  Sender: FDA-Public Use
  Company Number: US-WATSON-2009-04348

PATIENT
  Sex: Female

DRUGS (2)
  1. MYSOLINE [Suspect]
     Indication: CONVULSION
     Dosage: 250 MG, DAILY
     Route: 048
     Dates: start: 20080101
  2. DILANTIN [Suspect]
     Indication: CONVULSION
     Dosage: 100 MG, TID
     Route: 048
     Dates: start: 19630101

REACTIONS (2)
  - DRUG INEFFECTIVE [None]
  - PETIT MAL EPILEPSY [None]
